FAERS Safety Report 6418313-0 (Version None)
Quarter: 2009Q4

REPORT INFORMATION
  Report Type: 
  Country: None (occurrence: None)
  Receive Date: 20091028
  Receipt Date: 20091027
  Transmission Date: 20100525
  Serious: Yes (Hospitalization)
  Sender: FDA-Public Use
  Company Number: US-B.I. PHARMACEUTICALS,INC./RIDGEFIELD-2009-BP-10132BP

PATIENT
  Sex: Female

DRUGS (11)
  1. SPIRIVA [Suspect]
     Indication: BRONCHITIS CHRONIC
     Dosage: 18 MCG
     Route: 055
     Dates: start: 20070101
  2. SINGULAIR [Concomitant]
     Indication: MULTIPLE ALLERGIES
     Dates: start: 20010101
  3. LOPRESSOR [Concomitant]
     Indication: HYPERTENSION
  4. ADVAIR DISKUS 100/50 [Concomitant]
     Indication: BRONCHITIS CHRONIC
  5. PREMARIN [Concomitant]
     Indication: UTERINE HAEMORRHAGE
     Dates: start: 19720101
  6. PREMARIN [Concomitant]
     Indication: HYSTERECTOMY
  7. NASACORT [Concomitant]
     Indication: MULTIPLE ALLERGIES
     Dates: start: 20010101
  8. PATANOL [Concomitant]
     Indication: MULTIPLE ALLERGIES
     Dates: start: 20010101
  9. ALLEGRA [Concomitant]
     Indication: MULTIPLE ALLERGIES
     Dates: start: 20010101
  10. XYZAL [Concomitant]
     Indication: MULTIPLE ALLERGIES
     Dates: start: 20070101
  11. HIGH CHOLETEROL MEDICATION [Concomitant]
     Indication: BLOOD CHOLESTEROL INCREASED

REACTIONS (5)
  - ANAL FISTULA [None]
  - ATRIAL FIBRILLATION [None]
  - DIARRHOEA [None]
  - DIVERTICULUM [None]
  - PULMONARY EMBOLISM [None]
